FAERS Safety Report 7808373-4 (Version None)
Quarter: 2011Q4

REPORT INFORMATION
  Report Type: 
  Country: None (occurrence: None)
  Receive Date: 20111007
  Receipt Date: 20110928
  Transmission Date: 20120403
  Serious: Yes (Hospitalization)
  Sender: FDA-Public Use
  Company Number: 1058092

PATIENT
  Age: 42 Year
  Sex: Male

DRUGS (6)
  1. VINCRISTINE [Suspect]
     Indication: NON-HODGKIN'S LYMPHOMA STAGE II
  2. DOXORUBICIN HCL [Suspect]
     Indication: NON-HODGKIN'S LYMPHOMA STAGE II
  3. METHOTREXATE [Suspect]
     Indication: NON-HODGKIN'S LYMPHOMA STAGE II
  4. PREDNISONE [Suspect]
     Indication: NON-HODGKIN'S LYMPHOMA STAGE II
  5. BLEOMYCIN SULFATE [Suspect]
     Indication: NON-HODGKIN'S LYMPHOMA STAGE II
  6. CYCLOPHOSPHAMIDE [Suspect]
     Indication: NON-HODGKIN'S LYMPHOMA STAGE II

REACTIONS (5)
  - THROMBOCYTOPENIA [None]
  - LEUKOPENIA [None]
  - STEM CELL TRANSPLANT [None]
  - ANAEMIA [None]
  - MYELODYSPLASTIC SYNDROME [None]
